FAERS Safety Report 10956148 (Version 1)
Quarter: 2015Q1

REPORT INFORMATION
  Report Type: Spontaneous
  Country: JP (occurrence: JP)
  Receive Date: 20150326
  Receipt Date: 20150326
  Transmission Date: 20150721
  Serious: Yes (Hospitalization)
  Sender: FDA-Public Use
  Company Number: JP-JNJFOC-20150311200

PATIENT
  Sex: Male

DRUGS (3)
  1. RIUP X5 [Suspect]
     Active Substance: MINOXIDIL
     Indication: ANDROGENETIC ALOPECIA
     Dosage: 4-5 YEARS, MORE THAN TWICE A DAY
     Route: 061
     Dates: start: 2014, end: 2014
  2. LEVOTHYROXINE SODIUM. [Concomitant]
     Active Substance: LEVOTHYROXINE SODIUM
     Indication: PRODUCT USED FOR UNKNOWN INDICATION
     Route: 065
  3. RIUP X5 [Suspect]
     Active Substance: MINOXIDIL
     Indication: ANDROGENETIC ALOPECIA
     Dosage: 4-5 YEARS, MORE THAN TWICE A DAY
     Route: 061
     Dates: start: 2014, end: 2014

REACTIONS (1)
  - Cardiac valve disease [Recovered/Resolved]

NARRATIVE: CASE EVENT DATE: 2014
